FAERS Safety Report 10494922 (Version 1)
Quarter: 2014Q3

REPORT INFORMATION
  Report Type: Spontaneous
  Country: US (occurrence: None)
  Receive Date: 20140815
  Receipt Date: 20140815
  Transmission Date: 20150326
  Serious: Yes (Other)
  Sender: FDA-Public Use
  Company Number: ADR-2014-00892

PATIENT
  Age: 63 Year
  Sex: Male

DRUGS (2)
  1. FENTANYL 2000MCG/ML [Suspect]
     Active Substance: FENTANYL
  2. COMPOUNDED BACLOFEN INTRATHECAL 50MCG/ML [Suspect]
     Active Substance: BACLOFEN
     Indication: PAIN

REACTIONS (5)
  - Pain [None]
  - Drug withdrawal syndrome [None]
  - Nausea [None]
  - Muscle spasticity [None]
  - Vomiting [None]

NARRATIVE: CASE EVENT DATE: 20140514
